FAERS Safety Report 22294514 (Version 1)
Quarter: 2023Q2

REPORT INFORMATION
  Report Type: Spontaneous
  Country: US (occurrence: US)
  Receive Date: 20230508
  Receipt Date: 20230508
  Transmission Date: 20230722
  Serious: Yes (Other)
  Sender: FDA-Public Use
  Company Number: US-ASTELLAS-2022US032677

PATIENT
  Age: 75 Year
  Sex: Female

DRUGS (4)
  1. LEXISCAN [Suspect]
     Active Substance: REGADENOSON
     Indication: Cardiac stress test
     Dosage: 1 DF, OTHER (ONE DOSE FOR STRESS TEST)
     Route: 042
     Dates: start: 20220818, end: 20220818
  2. LEXISCAN [Suspect]
     Active Substance: REGADENOSON
     Indication: Cardiac stress test
     Dosage: 1 DF, OTHER (ONE DOSE FOR STRESS TEST)
     Route: 042
     Dates: start: 20220818, end: 20220818
  3. LEXISCAN [Suspect]
     Active Substance: REGADENOSON
     Indication: Cardiac stress test
     Dosage: 1 DF, OTHER (ONE DOSE FOR STRESS TEST)
     Route: 042
     Dates: start: 20220818, end: 20220818
  4. LEXISCAN [Suspect]
     Active Substance: REGADENOSON
     Indication: Cardiac stress test
     Dosage: 1 DF, OTHER (ONE DOSE FOR STRESS TEST)
     Route: 042
     Dates: start: 20220818, end: 20220818

REACTIONS (1)
  - Seizure [Recovered/Resolved]

NARRATIVE: CASE EVENT DATE: 20220818
